FAERS Safety Report 12601898 (Version 3)
Quarter: 2016Q3

REPORT INFORMATION
  Report Type: Report from Study
  Country: BR (occurrence: BR)
  Receive Date: 20160728
  Receipt Date: 20160905
  Transmission Date: 20161109
  Serious: Yes (Other)
  Sender: FDA-Public Use
  Company Number: BR-JNJFOC-20160719562

PATIENT
  Age: 59 Year
  Sex: Male

DRUGS (3)
  1. REMICADE [Suspect]
     Active Substance: INFLIXIMAB
     Indication: CROHN^S DISEASE
     Dosage: INFUSION DURATION 2 HOURS
     Route: 042
     Dates: start: 201510, end: 20160707
  2. REMICADE [Suspect]
     Active Substance: INFLIXIMAB
     Indication: CROHN^S DISEASE
     Dosage: INFUSION DURATION 1 HOUR
     Route: 042
     Dates: start: 2015
  3. REMICADE [Suspect]
     Active Substance: INFLIXIMAB
     Indication: CROHN^S DISEASE
     Route: 042
     Dates: start: 2009, end: 2010

REACTIONS (6)
  - Off label use [Unknown]
  - Shock [Unknown]
  - Fistula [Unknown]
  - Product use issue [Unknown]
  - Incorrect drug administration rate [Unknown]
  - Infusion related reaction [Unknown]

NARRATIVE: CASE EVENT DATE: 20160707
